FAERS Safety Report 9214635 (Version 2)
Quarter: 2013Q2

REPORT INFORMATION
  Report Type: Report from Study
  Country: US (occurrence: US)
  Receive Date: 20130405
  Receipt Date: 20130628
  Transmission Date: 20140414
  Serious: Yes (Hospitalization)
  Sender: FDA-Public Use
  Company Number: US-ELI_LILLY_AND_COMPANY-US201203008344

PATIENT
  Age: 57 Year
  Sex: Female
  Weight: 53.06 kg

DRUGS (14)
  1. TERIPARATIDE [Suspect]
     Indication: OSTEOPOROSIS
     Dosage: 20 UG, QD
     Route: 058
     Dates: start: 20120320
  2. TERIPARATIDE [Suspect]
     Dosage: 20 UG, QD
     Route: 058
  3. TERIPARATIDE [Suspect]
     Dosage: 20 UG, QD
     Route: 058
  4. LATUDA [Concomitant]
     Dosage: 80 MG, QD
  5. ADDERALL [Concomitant]
     Dosage: 20 MG, QD
  6. TRILEPTAL [Concomitant]
     Dosage: 900 MG, EACH MORNING
  7. KOLPON [Concomitant]
     Dosage: 1.5 MG, EACH EVENING
  8. TOPAMAX [Concomitant]
     Dosage: 100 MG, BID
  9. ATIVAN [Concomitant]
     Dosage: 2 MG, BID
  10. ASENAPINE [Concomitant]
     Dosage: 5 MG, PRN
  11. DIOVAN HCT [Concomitant]
     Dosage: 12.5 MG, QD
  12. DEXALIN [Concomitant]
     Dosage: 60 MG, QD
  13. PROMETHAZINE [Concomitant]
     Dosage: UNK, TID
  14. ZOMIG [Concomitant]
     Dosage: UNK, PRN

REACTIONS (16)
  - Deep vein thrombosis [Unknown]
  - Heart rate increased [Not Recovered/Not Resolved]
  - Migraine [Unknown]
  - Muscular weakness [Not Recovered/Not Resolved]
  - Speech disorder [Not Recovered/Not Resolved]
  - Pain in extremity [Unknown]
  - Epicondylitis [Unknown]
  - Gait disturbance [Not Recovered/Not Resolved]
  - Dysphonia [Not Recovered/Not Resolved]
  - Visual impairment [Unknown]
  - Malaise [Unknown]
  - Sensory disturbance [Unknown]
  - Arthralgia [Unknown]
  - Dizziness [Not Recovered/Not Resolved]
  - Hypotension [Unknown]
  - Pain [Unknown]
